FAERS Safety Report 9126167 (Version 1)
Quarter: 2013Q1

REPORT INFORMATION
  Report Type: Spontaneous
  Country: US (occurrence: US)
  Receive Date: 20130117
  Receipt Date: 20130117
  Transmission Date: 20140127
  Serious: Yes (Hospitalization)
  Sender: FDA-Public Use
  Company Number: US-GLAXOSMITHKLINE-A0910489A

PATIENT
  Age: 56 Year
  Sex: Female

DRUGS (1)
  1. AVANDIA [Suspect]
     Indication: DIABETES MELLITUS
     Dosage: 4MG TWICE PER DAY
     Route: 048
     Dates: start: 200809, end: 200912

REACTIONS (5)
  - Cerebrovascular accident [Not Recovered/Not Resolved]
  - Myocardial infarction [Unknown]
  - Blindness [Unknown]
  - Aphasia [Unknown]
  - Amnesia [Unknown]
